FAERS Safety Report 25734522 (Version 1)
Quarter: 2025Q3

REPORT INFORMATION
  Report Type: Spontaneous
  Country: RU (occurrence: RU)
  Receive Date: 20250828
  Receipt Date: 20250828
  Transmission Date: 20251021
  Serious: Yes (Hospitalization, Other)
  Sender: RANBAXY
  Company Number: RU-SUN PHARMACEUTICAL INDUSTRIES LTD-2025R1-524272

PATIENT
  Age: 14 Year
  Sex: Female

DRUGS (8)
  1. MESALAMINE [Suspect]
     Active Substance: MESALAMINE
     Indication: Colitis ulcerative
     Dosage: 67 MILLIGRAM/KILOGRAM, QD
     Route: 065
     Dates: start: 201412
  2. URSODIOL [Suspect]
     Active Substance: URSODIOL
     Indication: Colitis ulcerative
     Dosage: 250 MILLIGRAM, QD
     Route: 065
     Dates: start: 201412
  3. SULFASALAZINE [Suspect]
     Active Substance: SULFASALAZINE
     Indication: Colitis ulcerative
     Dosage: 63 MILLIGRAM/KILOGRAM, QD
     Route: 065
  4. METRONIDAZOLE [Suspect]
     Active Substance: METRONIDAZOLE
     Indication: Colitis ulcerative
     Dosage: 55 MILLIGRAM/KILOGRAM, QD
     Route: 065
  5. HYDROCORTISONE [Suspect]
     Active Substance: HYDROCORTISONE
     Indication: Colitis ulcerative
     Route: 065
  6. METHYLPREDNISOLONE [Concomitant]
     Active Substance: METHYLPREDNISOLONE
     Indication: Colitis ulcerative
     Route: 065
  7. potassium and magnesium aspartate [Concomitant]
     Indication: Colitis ulcerative
     Route: 065
  8. hydroxide polymaltose [Concomitant]
     Indication: Colitis ulcerative
     Dosage: 200 MILLIGRAM, QD
     Route: 065

REACTIONS (2)
  - Disease recurrence [Unknown]
  - Cholangitis sclerosing [Unknown]
